FAERS Safety Report 6171830-3 (Version None)
Quarter: 2009Q2

REPORT INFORMATION
  Report Type: 
  Country: None (occurrence: None)
  Receive Date: 20090428
  Receipt Date: 20090428
  Transmission Date: 20091009
  Serious: Yes (Hospitalization)
  Sender: FDA-Public Use
  Company Number: None

PATIENT
  Age: 37 Year
  Sex: Female
  Weight: 81.6475 kg

DRUGS (1)
  1. CARBAMAZEPINE [Suspect]
     Indication: TRIGEMINAL NEURALGIA
     Dosage: 1/2 TAB NIGHTLY PO
     Route: 048
     Dates: start: 20090331, end: 20090412

REACTIONS (4)
  - AGEUSIA [None]
  - ANOSMIA [None]
  - DYSPNOEA [None]
  - STEVENS-JOHNSON SYNDROME [None]
